FAERS Safety Report 6259127-4 (Version None)
Quarter: 2009Q3

REPORT INFORMATION
  Report Type: 
  Country: None (occurrence: None)
  Receive Date: 20090707
  Receipt Date: 20090622
  Transmission Date: 20100115
  Serious: Yes (Other)
  Sender: FDA-Public Use
  Company Number: FR-GENENTECH-281795

PATIENT
  Age: 71 Year
  Sex: Male

DRUGS (3)
  1. MABTHERA [Suspect]
     Indication: PEMPHIGUS
     Dosage: UNK
     Route: 042
     Dates: end: 20090409
  2. CORTANCYL [Concomitant]
     Indication: DRUG USE FOR UNKNOWN INDICATION
  3. ANTIHYPERTENSIVE NOS [Concomitant]
     Indication: DRUG USE FOR UNKNOWN INDICATION

REACTIONS (2)
  - CYTOLYTIC HEPATITIS [None]
  - THROMBOCYTOPENIA [None]
